FAERS Safety Report 4372681-2 (Version None)
Quarter: 2004Q2

REPORT INFORMATION
  Report Type: 
  Country: None (occurrence: None)
  Receive Date: 20040608
  Receipt Date: 20040527
  Transmission Date: 20050107
  Serious: Yes (Other)
  Sender: FDA-Public Use
  Company Number: US-JNJFOC-20040600355

PATIENT
  Age: 57 Year
  Sex: Female

DRUGS (4)
  1. REMICADE [Suspect]
     Indication: RHEUMATOID ARTHRITIS
     Route: 042
     Dates: start: 20030101, end: 20040301
  2. METHOTREXATE [Concomitant]
  3. SOLU-MEDROL [Concomitant]
  4. BENADRYL [Concomitant]

REACTIONS (4)
  - DIZZINESS [None]
  - LUPUS-LIKE SYNDROME [None]
  - MEMORY IMPAIRMENT [None]
  - SUPRAVENTRICULAR TACHYCARDIA [None]
